FAERS Safety Report 16281407 (Version 1)
Quarter: 2019Q2

REPORT INFORMATION
  Report Type: Spontaneous
  Country: US (occurrence: US)
  Receive Date: 20190507
  Receipt Date: 20190507
  Transmission Date: 20190711
  Serious: No
  Sender: FDA-Public Use
  Company Number: US-MYLANLABS-2019M1039665

PATIENT
  Sex: Female
  Weight: 45 kg

DRUGS (1)
  1. LEVOTHYROXINE SODIUM TABLETS, USP [Suspect]
     Active Substance: LEVOTHYROXINE SODIUM
     Indication: THYROID DISORDER
     Dosage: UNK
     Route: 048
     Dates: end: 20190418

REACTIONS (10)
  - Tremor [Unknown]
  - Temperature intolerance [Unknown]
  - Nervousness [Unknown]
  - Weight decreased [Unknown]
  - Constipation [Unknown]
  - Dizziness [Unknown]
  - Fall [Unknown]
  - Anxiety [Unknown]
  - Hypersensitivity [Unknown]
  - Headache [Unknown]
